FAERS Safety Report 15450032 (Version 4)
Quarter: 2019Q2

REPORT INFORMATION
  Report Type: Spontaneous
  Country: US (occurrence: US)
  Receive Date: 20181001
  Receipt Date: 20190515
  Transmission Date: 20190711
  Serious: No
  Sender: FDA-Public Use
  Company Number: US-PFIZER INC-2018391082

PATIENT
  Age: 48 Year
  Sex: Female

DRUGS (1)
  1. LYRICA [Suspect]
     Active Substance: PREGABALIN
     Dosage: UNK

REACTIONS (5)
  - Back disorder [Unknown]
  - Burning sensation [Unknown]
  - Paraesthesia [Unknown]
  - Pain in extremity [Unknown]
  - Pain [Unknown]
